FAERS Safety Report 13964256 (Version 1)
Quarter: 2017Q3

REPORT INFORMATION
  Report Type: Spontaneous
  Country: US (occurrence: None)
  Receive Date: 20170913
  Receipt Date: 20170913
  Transmission Date: 20171128
  Serious: No
  Sender: FDA-Public Use
  Company Number: None

PATIENT
  Age: 70 Year
  Sex: Male

DRUGS (1)
  1. IRON DEXTRAN [Suspect]
     Active Substance: IRON DEXTRAN
     Indication: IRON DEFICIENCY
     Dates: start: 20170309, end: 20170309

REACTIONS (4)
  - Pruritus [None]
  - Hyperhidrosis [None]
  - Hypotension [None]
  - Urticaria [None]

NARRATIVE: CASE EVENT DATE: 20170309
